FAERS Safety Report 12178287 (Version 1)
Quarter: 2016Q1

REPORT INFORMATION
  Report Type: Spontaneous
  Country: US (occurrence: None)
  Receive Date: 20160314
  Receipt Date: 20160314
  Transmission Date: 20160526
  Serious: Yes (Other)
  Sender: FDA-Public Use
  Company Number: None

PATIENT
  Age: 78 Year
  Sex: Male
  Weight: 81.19 kg

DRUGS (5)
  1. CLINDAMYCIN 300MG GREENSTONE LLC. [Suspect]
     Active Substance: CLINDAMYCIN PHOSPHATE
     Indication: TOOTH EXTRACTION
     Route: 048
     Dates: start: 20160308, end: 20160308
  2. LIPITOR [Concomitant]
     Active Substance: ATORVASTATIN CALCIUM
  3. BABY ASPIRIN [Concomitant]
     Active Substance: ASPIRIN
  4. AMLODIPINE [Concomitant]
     Active Substance: AMLODIPINE BESYLATE
  5. METFORMIN [Concomitant]
     Active Substance: METFORMIN HYDROCHLORIDE

REACTIONS (6)
  - Movement disorder [None]
  - Pain [None]
  - Dysstasia [None]
  - Urinary incontinence [None]
  - Malaise [None]
  - Abasia [None]

NARRATIVE: CASE EVENT DATE: 20160308
